FAERS Safety Report 8564300-6 (Version None)
Quarter: 2012Q3

REPORT INFORMATION
  Report Type: 
  Country: None (occurrence: None)
  Receive Date: 20120803
  Receipt Date: 20120725
  Transmission Date: 20120928
  Serious: Yes (Other)
  Sender: FDA-Public Use
  Company Number: CA-JNJFOC-20120110100

PATIENT
  Sex: Female
  Weight: 57.15 kg

DRUGS (6)
  1. VITAMIN D [Concomitant]
     Indication: PROPHYLAXIS
     Route: 048
  2. FLOVENT [Concomitant]
  3. REMICADE [Suspect]
     Indication: ANKYLOSING SPONDYLITIS
     Route: 042
     Dates: start: 20070501
  4. HYDROCHLOROTHIAZIDE [Concomitant]
     Indication: DIURETIC THERAPY
     Route: 048
  5. REMICADE [Suspect]
     Route: 042
     Dates: start: 20120109
  6. SPIRIVA [Concomitant]
     Indication: CHRONIC OBSTRUCTIVE PULMONARY DISEASE
     Dates: start: 20120201

REACTIONS (3)
  - URINARY TRACT INFECTION [None]
  - PNEUMONIA [None]
  - NUCLEAR MAGNETIC RESONANCE IMAGING ABNORMAL [None]
